FAERS Safety Report 5387389-4 (Version None)
Quarter: 2007Q3

REPORT INFORMATION
  Report Type: 
  Country: None (occurrence: None)
  Receive Date: 20070703
  Receipt Date: 20070407
  Transmission Date: 20080115
  Serious: No
  Sender: FDA-Public Use
  Company Number: 2007PV032796

PATIENT
  Age: 33 Year
  Sex: Female

DRUGS (6)
  1. SYMLIN [Suspect]
     Indication: TYPE 1 DIABETES MELLITUS
     Dosage: 60 MCG;TID;SC; 600 MCG;BID;SC; 450 MCG;BID;SC; 300 MCG; BID; SC; 150 MCG;BID;SC
     Route: 058
     Dates: start: 20070323, end: 20070325
  2. SYMLIN [Suspect]
     Indication: TYPE 1 DIABETES MELLITUS
     Dosage: 60 MCG;TID;SC; 600 MCG;BID;SC; 450 MCG;BID;SC; 300 MCG; BID; SC; 150 MCG;BID;SC
     Route: 058
     Dates: start: 20070326, end: 20070328
  3. SYMLIN [Suspect]
     Indication: TYPE 1 DIABETES MELLITUS
     Dosage: 60 MCG;TID;SC; 600 MCG;BID;SC; 450 MCG;BID;SC; 300 MCG; BID; SC; 150 MCG;BID;SC
     Route: 058
     Dates: start: 20070329, end: 20070331
  4. SYMLIN [Suspect]
     Indication: TYPE 1 DIABETES MELLITUS
     Dosage: 60 MCG;TID;SC; 600 MCG;BID;SC; 450 MCG;BID;SC; 300 MCG; BID; SC; 150 MCG;BID;SC
     Route: 058
     Dates: start: 20070401, end: 20070407
  5. SYMLIN [Suspect]
     Indication: TYPE 1 DIABETES MELLITUS
     Dosage: 60 MCG;TID;SC; 600 MCG;BID;SC; 450 MCG;BID;SC; 300 MCG; BID; SC; 150 MCG;BID;SC
     Route: 058
     Dates: start: 20070410
  6. HUMALOG [Concomitant]

REACTIONS (3)
  - BLOOD GLUCOSE DECREASED [None]
  - INCORRECT DOSE ADMINISTERED [None]
  - TREMOR [None]
